FAERS Safety Report 5085748-0 (Version None)
Quarter: 2006Q3

REPORT INFORMATION
  Report Type: 
  Country: None (occurrence: None)
  Receive Date: 20060822
  Receipt Date: 20051221
  Transmission Date: 20061208
  Serious: No
  Sender: FDA-Public Use
  Company Number: US-BRISTOL-MYERS SQUIBB COMPANY-13225875

PATIENT
  Age: 39 Year
  Sex: Female
  Weight: 85 kg

DRUGS (6)
  1. ZERIT [Suspect]
     Indication: ACQUIRED IMMUNODEFICIENCY SYNDROME
     Dates: start: 20050420
  2. EPIVIR [Concomitant]
  3. KALETRA [Concomitant]
  4. FUZEON [Concomitant]
  5. GANCICLOVIR [Concomitant]
  6. BACTRIM DS [Concomitant]

REACTIONS (2)
  - CONJUNCTIVITIS [None]
  - LIPODYSTROPHY ACQUIRED [None]
